FAERS Safety Report 22624821 (Version 1)
Quarter: 2023Q2

REPORT INFORMATION
  Report Type: Report from Study
  Country: BR (occurrence: BR)
  Receive Date: 20230621
  Receipt Date: 20230621
  Transmission Date: 20230722
  Serious: Yes (Hospitalization)
  Sender: FDA-Public Use
  Company Number: BR-JNJFOC-20230640215

PATIENT
  Age: 27 Year
  Sex: Male
  Weight: 67 kg

DRUGS (1)
  1. SIMPONI [Suspect]
     Active Substance: GOLIMUMAB
     Indication: Ankylosing spondylitis
     Route: 058

REACTIONS (7)
  - Facial bones fracture [Unknown]
  - Haemorrhage [Unknown]
  - Road traffic accident [Unknown]
  - Pain in extremity [Unknown]
  - Musculoskeletal stiffness [Unknown]
  - Muscle strain [Unknown]
  - Confusional state [Unknown]

NARRATIVE: CASE EVENT DATE: 20230501
